FAERS Safety Report 8616534 (Version 2)
Quarter: 2014Q1

REPORT INFORMATION
  Report Type: Spontaneous
  Country: US (occurrence: US)
  Receive Date: 20120615
  Receipt Date: 20140130
  Transmission Date: 20141002
  Serious: Yes (Hospitalization, Disabling)
  Sender: FDA-Public Use
  Company Number: US-ASTRAZENECA-2012SE34548

PATIENT
  Age: 42 Year
  Sex: Female
  Weight: 100.7 kg

DRUGS (10)
  1. NEXIUM [Suspect]
     Indication: GASTRIC DISORDER
     Dosage: 1 PILL A DAY
     Route: 048
     Dates: start: 2000, end: 2009
  2. NEXIUM [Suspect]
     Indication: GASTROOESOPHAGEAL REFLUX DISEASE
     Dosage: 1 PILL A DAY
     Route: 048
     Dates: start: 2000, end: 2009
  3. NEXIUM [Suspect]
     Indication: GASTRIC DISORDER
     Dosage: (GENERIC) 2 PILL A DAY
     Route: 048
     Dates: start: 2009
  4. NEXIUM [Suspect]
     Indication: GASTROOESOPHAGEAL REFLUX DISEASE
     Dosage: (GENERIC) 2 PILL A DAY
     Route: 048
     Dates: start: 2009
  5. PREVACID [Concomitant]
     Dosage: 2 A DAY
  6. ZANTAC [Concomitant]
     Dates: start: 1999
  7. ROLAIDS [Concomitant]
  8. TUMS [Concomitant]
  9. MYLANTA [Concomitant]
  10. DIOVAN [Concomitant]
     Indication: BLOOD PRESSURE ABNORMAL

REACTIONS (10)
  - Lower limb fracture [Unknown]
  - Back disorder [Unknown]
  - Ankle fracture [Unknown]
  - Gout [Unknown]
  - Bone disorder [Unknown]
  - Arthritis [Unknown]
  - Hypertension [Unknown]
  - Mental disorder [Unknown]
  - Osteoporosis [Unknown]
  - Depression [Unknown]
